FAERS Safety Report 8740543 (Version 2)
Quarter: 2013Q1

REPORT INFORMATION
  Report Type: Spontaneous
  Country: US (occurrence: US)
  Receive Date: 20120823
  Receipt Date: 20130205
  Transmission Date: 20140127
  Serious: No
  Sender: FDA-Public Use
  Company Number: US-009507513-1208USA007123

PATIENT
  Sex: Male

DRUGS (7)
  1. JANUVIA [Suspect]
     Indication: DIABETES MELLITUS
     Dosage: 100 MG, QD
     Route: 048
     Dates: start: 20120801
  2. PRILOSEC [Concomitant]
     Route: 048
  3. VYTORIN [Concomitant]
     Route: 048
  4. GLIMEPIRIDE [Concomitant]
  5. LYRICA [Concomitant]
  6. ZIAC [Concomitant]
  7. ZOLOFT [Concomitant]

REACTIONS (1)
  - Headache [Not Recovered/Not Resolved]
